FAERS Safety Report 9929074 (Version 3)
Quarter: 2014Q2

REPORT INFORMATION
  Report Type: Spontaneous
  Country: JP (occurrence: JP)
  Receive Date: 20140227
  Receipt Date: 20140618
  Transmission Date: 20141212
  Serious: Yes (Life-Threatening, Hospitalization)
  Sender: FDA-Public Use
  Company Number: JP-PFIZER INC-2014055697

PATIENT
  Age: 69 Year
  Sex: Female

DRUGS (16)
  1. ZYPREXA [Suspect]
     Dosage: UNK
     Dates: start: 20130330
  2. CONIEL [Suspect]
     Indication: HYPERTENSION
     Dosage: 20 TABLETS
     Route: 048
     Dates: start: 20130422, end: 20130422
  3. CONIEL [Suspect]
     Dosage: UNK
  4. CYMBALTA [Suspect]
     Indication: DEPRESSION
     Dosage: 28-20 MG TABLETS
     Route: 048
     Dates: start: 20130422, end: 20130422
  5. CYMBALTA [Suspect]
     Dosage: UNK
     Dates: start: 20130330
  6. SILVINOL [Suspect]
     Dosage: 48-5 MG TABLETS
     Route: 048
     Dates: start: 20130422, end: 20130422
  7. BALDEKEN-R [Suspect]
     Dosage: 28 -200 MG TABLETS
     Route: 048
     Dates: start: 20130422, end: 20130422
  8. DEPAS [Concomitant]
     Dosage: UNK
     Route: 048
     Dates: start: 20130330
  9. ATORVASTATIN CALCIUM [Suspect]
     Indication: HYPERLIPIDAEMIA
     Dosage: 12 TABLETS, SINGLE
     Route: 048
     Dates: start: 20130422, end: 20130422
  10. ATORVASTATIN CALCIUM [Suspect]
     Dosage: UNK
  11. SEROQUEL [Suspect]
     Indication: DEPRESSION
     Dosage: 28-25 MG TABLETS, SINGLE
     Route: 048
     Dates: start: 20130422, end: 20130422
  12. SEROQUEL [Suspect]
     Dosage: UNK
  13. MYSLEE [Suspect]
     Indication: DEPRESSION
     Dosage: 32 TABLETS
     Route: 048
     Dates: start: 20130422, end: 20130422
  14. MYSLEE [Suspect]
     Dosage: UNK
     Dates: start: 20130330
  15. GASTER [Suspect]
     Dosage: 20-10 MG TABLETS, SINGLE
     Route: 048
     Dates: start: 20130422, end: 20130422
  16. ZYPREXA [Suspect]
     Indication: DEPRESSION
     Dosage: 1 TABLET, SINGLE
     Route: 048
     Dates: start: 20130422, end: 20130422

REACTIONS (2)
  - Intentional overdose [Recovered/Resolved]
  - Toxicity to various agents [Recovered/Resolved]
